FAERS Safety Report 19835972 (Version 2)
Quarter: 2022Q2

REPORT INFORMATION
  Report Type: Spontaneous
  Country: US (occurrence: US)
  Receive Date: 20210916
  Receipt Date: 20220622
  Transmission Date: 20220721
  Serious: Yes (Other)
  Sender: FDA-Public Use
  Company Number: US-LUPIN PHARMACEUTICALS INC.-2021-17364

PATIENT
  Age: 41 Year
  Sex: Female
  Weight: 161 kg

DRUGS (2)
  1. VANCOMYCIN [Interacting]
     Active Substance: VANCOMYCIN
     Indication: Panniculitis
     Dosage: UNK, A LOADING DOSE OF 2G FOLLOWED BY A MAINTENANCE DOSE OF 1.75 G EVERY 8 HOURS
     Route: 065
  2. PIPERACILLIN SODIUM\TAZOBACTAM SODIUM [Interacting]
     Active Substance: PIPERACILLIN SODIUM\TAZOBACTAM SODIUM
     Indication: Panniculitis
     Dosage: UNK (DOSE WAS ADJUSTED AND LATER ON STOPPED AFTER NEGATIVE CULTURES)
     Route: 065

REACTIONS (2)
  - Acute kidney injury [Recovering/Resolving]
  - Drug interaction [Unknown]
